FAERS Safety Report 7450087-7 (Version None)
Quarter: 2011Q2

REPORT INFORMATION
  Report Type: 
  Country: None (occurrence: None)
  Receive Date: 20110502
  Receipt Date: 20090316
  Transmission Date: 20111010
  Serious: Yes (Hospitalization, Other)
  Sender: FDA-Public Use
  Company Number: US-BAYER-200915572NA

PATIENT
  Age: 58 Year
  Sex: Male
  Weight: 96 kg

DRUGS (10)
  1. FUROSEMIDE [Concomitant]
     Indication: POLYURIA
     Dosage: UNK
     Dates: start: 20040901
  2. TRASYLOL [Suspect]
     Indication: CORONARY ARTERY BYPASS
     Dosage: 200 ML, LOADING DOSE
     Dates: start: 20040824
  3. HYDROCHLOROTHIAZIDE [Concomitant]
     Indication: HYPERTENSION
     Dosage: 25 MG, QD
     Route: 048
  4. LISINOPRIL [Concomitant]
     Dosage: 10 MG, QD
     Route: 048
  5. TOPROL-XL [Concomitant]
     Indication: HYPERTENSION
     Dosage: 100 MG, QD
     Route: 048
  6. HEPARIN [Concomitant]
     Dosage: 10000 U, UNK
     Dates: start: 20040824, end: 20040824
  7. HEPARIN [Concomitant]
     Dosage: 250000
     Route: 042
     Dates: start: 20040824, end: 20040824
  8. MANNITOL [Concomitant]
     Dosage: UNK
     Route: 042
     Dates: start: 20040824, end: 20040824
  9. ASPIRIN [Concomitant]
     Dosage: 325 MG, QD
     Route: 048
  10. INSULIN [INSULIN] [Concomitant]
     Dosage: 2.1 ML, 2X
     Dates: start: 20040824, end: 20040824

REACTIONS (9)
  - ANXIETY [None]
  - ANHEDONIA [None]
  - RENAL FAILURE [None]
  - DEPRESSION [None]
  - CEREBROVASCULAR ACCIDENT [None]
  - FEAR [None]
  - INJURY [None]
  - ADVERSE EVENT [None]
  - PAIN [None]
